FAERS Safety Report 10286944 (Version 5)
Quarter: 2014Q3

REPORT INFORMATION
  Report Type: Spontaneous
  Country: GB (occurrence: None)
  Receive Date: 20140707
  Receipt Date: 20140829
  Transmission Date: 20150326
  Serious: Yes (Hospitalization, Other)
  Sender: FDA-Public Use
  Company Number: AUR-APL-2014-07031

PATIENT
  Age: 58 Year
  Sex: Female

DRUGS (6)
  1. TICAGRELOR (TICAGRELOR) [Suspect]
     Active Substance: TICAGRELOR
     Indication: PRODUCT USED FOR UNKNOWN INDICATION
  2. CONCOR (BISOPROLOL FUMARATE) [Concomitant]
  3. VALSARTAN (VALSARTAN) [Suspect]
     Active Substance: VALSARTAN
     Indication: HYPERTENSION
     Dates: end: 20140207
  4. RAMIPRIL. [Suspect]
     Active Substance: RAMIPRIL
     Indication: HYPERTENSION
     Route: 048
  5. IRBESARTAN. [Suspect]
     Active Substance: IRBESARTAN
     Indication: HYPERTENSION
  6. RAMIPRIL (RAMIPRIL) [Concomitant]
     Active Substance: RAMIPRIL

REACTIONS (16)
  - Mouth swelling [None]
  - Blood pressure fluctuation [None]
  - Discomfort [None]
  - Troponin increased [None]
  - Rectal haemorrhage [None]
  - Nasal dryness [None]
  - Swollen tongue [None]
  - Scab [None]
  - Ear discomfort [None]
  - Myocardial infarction [None]
  - Gastrointestinal oedema [None]
  - Nasal discomfort [None]
  - Coronary artery stenosis [None]
  - Blood pressure systolic increased [None]
  - Joint stiffness [None]
  - Abdominal distension [None]
